FAERS Safety Report 9856057 (Version 2)
Quarter: 2014Q1

REPORT INFORMATION
  Report Type: Report from Study
  Country: US (occurrence: US)
  Receive Date: 20140130
  Receipt Date: 20140219
  Transmission Date: 20141002
  Serious: Yes (Life-Threatening)
  Sender: FDA-Public Use
  Company Number: US-009507513-1401USA012744

PATIENT
  Sex: 0

DRUGS (2)
  1. ELAVIL (MADE BY MERCK, MARKETED BY ZENECA) [Suspect]
     Indication: MIGRAINE
     Dosage: DOSE WAS INCREASED BY 0.25 MG/KG AT WEEKS 0, 2, 4, 6 TO A GOAL DOSE OF 1MG/KG/D, AT DINNER TIME
     Route: 048
  2. ELAVIL (MADE BY MERCK, MARKETED BY ZENECA) [Suspect]
     Dosage: FROM WEEK 8 TO WEEK 20
     Route: 048

REACTIONS (1)
  - Cardiovascular disorder [Unknown]
